FAERS Safety Report 16143089 (Version 3)
Quarter: 2019Q3

REPORT INFORMATION
  Report Type: Spontaneous
  Country: US (occurrence: US)
  Receive Date: 20190401
  Receipt Date: 20190708
  Transmission Date: 20191004
  Serious: Yes (Death, Other)
  Sender: FDA-Public Use
  Company Number: US-NAPPMUNDI-USA-2019-0146671

PATIENT
  Sex: Male

DRUGS (3)
  1. MORPHINE SULFATE (SIMILAR TO NDA 19-516) [Suspect]
     Active Substance: MORPHINE SULFATE
     Indication: PAIN
     Dosage: UNK
     Route: 048
  2. CANNABIS [Suspect]
     Active Substance: CANNABIS SATIVA SUBSP. INDICA TOP
     Indication: PAIN
     Dosage: UNK
     Route: 065
  3. OXYCONTIN [Suspect]
     Active Substance: OXYCODONE HYDROCHLORIDE
     Indication: PAIN
     Dosage: UNK
     Route: 048

REACTIONS (18)
  - Discomfort [Unknown]
  - Agitation [Unknown]
  - Death [Fatal]
  - Pain [Unknown]
  - Unevaluable event [Unknown]
  - Pruritus [Unknown]
  - Drug ineffective [Unknown]
  - Euphoric mood [Unknown]
  - Gait inability [Unknown]
  - Substance abuse [Unknown]
  - Anger [Unknown]
  - Vomiting [Unknown]
  - Nausea [Unknown]
  - Haemorrhage [Unknown]
  - Crying [Unknown]
  - Aggression [Unknown]
  - Lethargy [Unknown]
  - Insomnia [Unknown]

NARRATIVE: CASE EVENT DATE: 20180121
